FAERS Safety Report 12362214 (Version 1)
Quarter: 2016Q2

REPORT INFORMATION
  Report Type: Spontaneous
  Country: US (occurrence: US)
  Receive Date: 20160512
  Receipt Date: 20160512
  Transmission Date: 20160815
  Serious: Yes (Hospitalization, Other)
  Sender: FDA-Public Use
  Company Number: US-MDT-ADR-2016-00479

PATIENT
  Age: 48 Year
  Sex: Female

DRUGS (4)
  1. CLINDAMYCIN [Suspect]
     Active Substance: CLINDAMYCIN\CLINDAMYCIN PHOSPHATE
  2. MORPHINE [Suspect]
     Active Substance: MORPHINE
     Route: 037
  3. BACLOFEN. [Suspect]
     Active Substance: BACLOFEN
     Route: 037
  4. VANCOMYCIN [Suspect]
     Active Substance: VANCOMYCIN

REACTIONS (7)
  - Clostridium difficile infection [Unknown]
  - Weight decreased [Unknown]
  - Adverse drug reaction [Unknown]
  - Chest pain [Unknown]
  - Malaise [Unknown]
  - Vomiting [Unknown]
  - Gastritis [Unknown]

NARRATIVE: CASE EVENT DATE: 201512
